FAERS Safety Report 6370724-8 (Version None)
Quarter: 2009Q3

REPORT INFORMATION
  Report Type: 
  Country: None (occurrence: None)
  Receive Date: 20090923
  Receipt Date: 20070626
  Transmission Date: 20100115
  Serious: No
  Sender: FDA-Public Use
  Company Number: US-ASTRAZENECA-2006UW25166

PATIENT
  Age: 21487 Day
  Sex: Female
  Weight: 68 kg

DRUGS (9)
  1. SEROQUEL [Suspect]
     Indication: SCHIZOPHRENIA
     Route: 048
     Dates: start: 20040130
  2. SEROQUEL [Suspect]
     Route: 048
     Dates: start: 20041101, end: 20060116
  3. TRAZODONE [Concomitant]
     Route: 048
     Dates: start: 20040621
  4. LORAZEPAM [Concomitant]
     Route: 048
     Dates: start: 20040622
  5. WELLBUTRIN [Concomitant]
     Route: 048
     Dates: start: 20040623
  6. MIRTAZAPINE [Concomitant]
     Route: 048
     Dates: start: 20040624
  7. ALPRAZOLAM [Concomitant]
     Route: 048
     Dates: start: 20040625
  8. AMBIEN [Concomitant]
     Route: 048
     Dates: start: 20040626
  9. BENZTROPINE MESYLATE [Concomitant]
     Route: 048
     Dates: start: 20040627

REACTIONS (1)
  - DIABETES MELLITUS [None]
